FAERS Safety Report 9797819 (Version 2)
Quarter: 2014Q1

REPORT INFORMATION
  Report Type: Report from Study
  Country: DE (occurrence: DE)
  Receive Date: 20140106
  Receipt Date: 20140113
  Transmission Date: 20141002
  Serious: Yes (Life-Threatening, Hospitalization)
  Sender: FDA-Public Use
  Company Number: DE-ROCHE-1327473

PATIENT
  Age: 51 Year
  Sex: Female
  Weight: 52 kg

DRUGS (7)
  1. PERTUZUMAB [Suspect]
     Indication: BREAST CANCER
     Dosage: LOADING DOSE
     Route: 042
     Dates: start: 20130906, end: 20140106
  2. PERTUZUMAB [Suspect]
     Dosage: MAINTAINANCE DOSE, DATE OF LAST DOSE ADMINISTERED PRIOR TO SAE: 16/DEC/2013
     Route: 042
  3. TRASTUZUMAB [Suspect]
     Indication: BREAST CANCER
     Dosage: LOADING DOSE
     Route: 042
     Dates: start: 20130906, end: 20140106
  4. TRASTUZUMAB [Suspect]
     Dosage: MAINTAINANCE DOSE, DATE OF LAST DOSE PRIOR TO SAE: 16/DEC/2013
     Route: 042
     Dates: end: 20140106
  5. EPIRUBICIN [Suspect]
     Indication: BREAST CANCER
     Dosage: DATE OF LAST DOSE ADMINISTERED PRIOR TO SAE: 16/DEC/2013
     Route: 042
     Dates: start: 20131216, end: 20140106
  6. CYCLOPHOSPHAMIDE [Suspect]
     Indication: BREAST CANCER
     Dosage: DATE OF LAST DOSE ADMINISTERED PRIOR TO SAE: 16/DEC/2013
     Route: 042
     Dates: start: 20131216, end: 20140106
  7. PACLITAXEL [Suspect]
     Indication: BREAST CANCER
     Route: 042
     Dates: start: 20130906, end: 20131122

REACTIONS (1)
  - Intracranial venous sinus thrombosis [Recovered/Resolved]
